FAERS Safety Report 8831240 (Version 2)
Quarter: 2013Q2

REPORT INFORMATION
  Report Type: Report from Study
  Country: FR (occurrence: FR)
  Receive Date: 20121009
  Receipt Date: 20130402
  Transmission Date: 20140414
  Serious: Yes (Other)
  Sender: FDA-Public Use
  Company Number: PHHO2012FR014362

PATIENT
  Age: 63 Year
  Sex: Male
  Weight: 76 kg

DRUGS (1)
  1. NO TREATMENT RECEIVED [Suspect]
     Indication: GASTROINTESTINAL STROMAL TUMOUR
     Dosage: NO TREATMENT

REACTIONS (2)
  - Astrocytoma [Not Recovered/Not Resolved]
  - Second primary malignancy [Not Recovered/Not Resolved]
